FAERS Safety Report 8544396-8 (Version None)
Quarter: 2012Q3

REPORT INFORMATION
  Report Type: 
  Country: None (occurrence: None)
  Receive Date: 20120727
  Receipt Date: 20120717
  Transmission Date: 20120928
  Serious: Yes (Hospitalization)
  Sender: FDA-Public Use
  Company Number: US-BAYER-2012-044625

PATIENT
  Age: 45 Year
  Sex: Female
  Weight: 82 kg

DRUGS (19)
  1. CARDIZEM [Concomitant]
     Indication: SINUS TACHYCARDIA
     Dosage: UNK
     Dates: start: 20071011
  2. METHYLPREDNISOLONE [Concomitant]
     Dosage: 8 MG, UNK
     Dates: start: 20080602
  3. DAYQUIL [DEXTROMET HBR,GUAIF,PARACET,PSEUDOEPH HCL] [Concomitant]
     Dosage: UNK
     Dates: start: 20080409
  4. NYQUIL [Concomitant]
     Dosage: UNK
     Dates: start: 20080409
  5. AVELOX [Concomitant]
  6. MEDROL [Concomitant]
     Dosage: UNK
     Route: 040
     Dates: start: 20080529
  7. NYSTATIN [Concomitant]
     Dosage: 100000 U, UNK
     Dates: start: 20080602
  8. DRUGS FOR OBSTRUCTIVE AIRWAY DISEASES [Concomitant]
  9. METHYLPREDNISOLONE [Concomitant]
     Dosage: 4 MG, UNK
     Dates: start: 20080409
  10. YASMIN [Suspect]
     Indication: CONTRACEPTION
     Dosage: UNK
     Dates: start: 20070507, end: 20080622
  11. CEPHALEXIN [Concomitant]
     Dosage: 500 MG, UNK
     Dates: start: 20080409
  12. OPIUM ALKALOIDS AND DERIVATIVES [Concomitant]
     Dosage: UNK
     Dates: start: 20080527
  13. INTRAVENOUS STEROIDS [Concomitant]
  14. CHLORPHEN.MA.W/PHENYLEPH.HCL/DEX.METHORP.HBR [Concomitant]
  15. XOPENEX [Concomitant]
     Dosage: 1.25MG/3ML
     Dates: start: 20080602
  16. IPRATROPIUM BROMIDE [Concomitant]
     Dosage: 0.02 %, UNK
     Dates: start: 20080602
  17. ACIPHEX [Concomitant]
     Dosage: UNK
     Dates: start: 20080409
  18. ATIVAN [Concomitant]
  19. FLONASE [Concomitant]
     Dosage: 50 ?G, QD
     Dates: start: 20080409

REACTIONS (13)
  - ANXIETY [None]
  - FEAR [None]
  - PAIN [None]
  - OEDEMA PERIPHERAL [None]
  - HEART RATE INCREASED [None]
  - THROMBOSIS [None]
  - DYSPNOEA [None]
  - DEEP VEIN THROMBOSIS [None]
  - PAIN IN EXTREMITY [None]
  - ANHEDONIA [None]
  - SINUS TACHYCARDIA [None]
  - CHEST PAIN [None]
  - PULMONARY EMBOLISM [None]
